FAERS Safety Report 7554242-7 (Version None)
Quarter: 2011Q2

REPORT INFORMATION
  Report Type: 
  Country: None (occurrence: None)
  Receive Date: 20110617
  Receipt Date: 20110610
  Transmission Date: 20111010
  Serious: Yes (Other)
  Sender: FDA-Public Use
  Company Number: US-PFIZER INC-2011063807

PATIENT
  Sex: Female
  Weight: 87.5 kg

DRUGS (3)
  1. DEPO-PROVERA [Suspect]
     Indication: CONTRACEPTION
     Dosage: 150 MG, EVERY 3 MONTHS
     Route: 030
     Dates: start: 20101214
  2. WELLBUTRIN [Concomitant]
     Indication: POSTPARTUM DEPRESSION
     Dosage: 100 MG, 2X/DAY
     Route: 048
  3. HYDROXYZINE [Concomitant]
     Indication: INSOMNIA
     Dosage: 50 MG, 1X/DAY
     Route: 048

REACTIONS (2)
  - UNINTENDED PREGNANCY [None]
  - DRUG INEFFECTIVE [None]
